FAERS Safety Report 7184483-2 (Version None)
Quarter: 2010Q4

REPORT INFORMATION
  Report Type: 
  Country: None (occurrence: None)
  Receive Date: 20101222
  Receipt Date: 20100520
  Transmission Date: 20110411
  Serious: Yes (Other)
  Sender: FDA-Public Use
  Company Number: US-AMGEN-QUU413548

PATIENT

DRUGS (8)
  1. ENBREL [Suspect]
     Indication: RHEUMATOID ARTHRITIS
     Dosage: 50 MG, QWK
  2. FLUOXETINE HYDROCHLORIDE [Concomitant]
     Dosage: UNK UNK, UNK
  3. FOLIC ACID [Concomitant]
     Dosage: UNK UNK, UNK
  4. PREDNISONE [Concomitant]
     Dosage: UNK UNK, UNK
  5. MIDRID [Concomitant]
     Dosage: UNK UNK, UNK
  6. TRAMADOL HYDROCHLORIDE W/ACETAMINOPHEN [Concomitant]
     Dosage: UNK UNK, UNK
  7. METHOTREXATE [Concomitant]
     Dosage: UNK UNK, UNK
  8. UNSPECIFIED MEDICATION [Concomitant]
     Dosage: UNK UNK, UNK

REACTIONS (1)
  - BREAST CANCER [None]
